FAERS Safety Report 4343623-0 (Version None)
Quarter: 2004Q2

REPORT INFORMATION
  Report Type: 
  Country: None (occurrence: None)
  Receive Date: 20040419
  Receipt Date: 20040227
  Transmission Date: 20050107
  Serious: Yes (Hospitalization, Other)
  Sender: FDA-Public Use
  Company Number: KII-2004-0009464

PATIENT
  Age: 23 Year
  Sex: Male

DRUGS (6)
  1. OXYCONTIN [Suspect]
  2. ACETAMINOPHEN AND HYDROCODONE BITARTRATE [Suspect]
  3. COCAINE(COCAINE) [Suspect]
  4. KETAMINE HCL [Suspect]
  5. BETA BLOCKING AGENTS AND VASODILATORS [Suspect]
  6. BENZODIAZEPINE DERIVATIVES [Suspect]

REACTIONS (9)
  - BLOOD GASES ABNORMAL [None]
  - BLOOD LACTIC ACID INCREASED [None]
  - DRUG SCREEN POSITIVE [None]
  - INTENTIONAL OVERDOSE [None]
  - MULTIPLE DRUG OVERDOSE [None]
  - OXYGEN SATURATION DECREASED [None]
  - PCO2 INCREASED [None]
  - PO2 DECREASED [None]
  - ROAD TRAFFIC ACCIDENT [None]
